FAERS Safety Report 4459437-7 (Version None)
Quarter: 2004Q3

REPORT INFORMATION
  Report Type: 
  Country: None (occurrence: None)
  Receive Date: 20040927
  Receipt Date: 20040916
  Transmission Date: 20050211
  Serious: Yes (Life-Threatening)
  Sender: FDA-Public Use
  Company Number: 2004JP001672

PATIENT
  Age: 79 Year
  Sex: Male

DRUGS (5)
  1. CEFAZOLIN [Suspect]
     Dosage: 2G PER DAY
     Route: 042
  2. GABEXATE MESYLATE [Concomitant]
  3. IMIPENEM [Concomitant]
  4. VANCOMYCIN [Concomitant]
  5. CILASTATIN SODIUM [Concomitant]

REACTIONS (2)
  - DISSEMINATED INTRAVASCULAR COAGULATION [None]
  - PANCYTOPENIA [None]
